FAERS Safety Report 8108168-0 (Version None)
Quarter: 2011Q4

REPORT INFORMATION
  Report Type: 
  Country: None (occurrence: None)
  Receive Date: 20111227
  Receipt Date: 20111123
  Transmission Date: 20120403
  Serious: Yes (Other)
  Sender: FDA-Public Use
  Company Number: PHEH2011US06447

PATIENT
  Age: 61 Year
  Sex: Female

DRUGS (6)
  1. VYTONE (DIODOHYDROXYQUINOLINE, HYDROCORTISONE) [Concomitant]
  2. SYNTHROID [Concomitant]
  3. CYMBALTA [Concomitant]
  4. DIOVAN [Concomitant]
  5. GILENYA [Suspect]
     Indication: MULTIPLE SCLEROSIS
     Dosage: 0.5 MG, QD, ORAL
     Route: 048
     Dates: start: 20110713
  6. GABAPENTIN [Concomitant]

REACTIONS (2)
  - CATARACT NUCLEAR [None]
  - MACULAR OEDEMA [None]
